FAERS Safety Report 22362478 (Version 1)
Quarter: 2023Q2

REPORT INFORMATION
  Report Type: Spontaneous
  Country: CN (occurrence: CN)
  Receive Date: 20230524
  Receipt Date: 20230524
  Transmission Date: 20230722
  Serious: Yes (Other)
  Sender: FDA-Public Use
  Company Number: CN-PARATEK PHARMACEUTICALS, INC.-2023PTK00227

PATIENT
  Age: 55 Year
  Sex: Male

DRUGS (2)
  1. NUZYRA [Suspect]
     Active Substance: OMADACYCLINE
     Indication: Pancreatitis
     Dosage: 200 MG, 1X/DAY
     Route: 041
     Dates: start: 20230430, end: 20230430
  2. NUZYRA [Suspect]
     Active Substance: OMADACYCLINE
     Dosage: 100 MG, 1X/DAY
     Route: 041
     Dates: start: 20230501, end: 20230511

REACTIONS (2)
  - Myelosuppression [Unknown]
  - Off label use [Recovered/Resolved]

NARRATIVE: CASE EVENT DATE: 20230430
